FAERS Safety Report 4471175-3 (Version None)
Quarter: 2004Q4

REPORT INFORMATION
  Report Type: 
  Country: None (occurrence: None)
  Receive Date: 20041006
  Receipt Date: 20040923
  Transmission Date: 20050328
  Serious: Yes (Hospitalization, Other)
  Sender: FDA-Public Use
  Company Number: 2004070492

PATIENT
  Age: 78 Year
  Sex: Female

DRUGS (8)
  1. SORTIS (ATORVASTATIN) [Suspect]
     Indication: HYPERLIPIDAEMIA
     Dosage: 20 MG (20 MG, 1 IN 1 D), ORAL
     Route: 048
     Dates: start: 20030101, end: 20040604
  2. ENALAPRIL MALEATE [Suspect]
     Indication: HYPERTENSION
     Dosage: 5 MG (1 IN 1 D), ORAL
     Route: 048
     Dates: start: 20020101, end: 20040604
  3. PHENPROCOUMON (PHENPROCOUMON) [Suspect]
     Indication: PROPHYLAXIS
     Dosage: 3 MG (3 MG, 1 IN 1 D), ORAL
     Route: 048
     Dates: start: 20030301, end: 20040604
  4. METOPROPOL SUCCINATE (METOPROLOL SUCCINATE) [Concomitant]
  5. HYDROCHLOROTHIAZIDE [Concomitant]
  6. ESOMEPRAZOLE (ESOMEPRAZOLE) [Concomitant]
  7. AMLODIPINE BESYLATE [Concomitant]
  8. TORSEMIDE [Concomitant]

REACTIONS (16)
  - ASPARTATE AMINOTRANSFERASE INCREASED [None]
  - ASTHENIA [None]
  - BLOOD CREATININE INCREASED [None]
  - BLOOD PRESSURE DIASTOLIC DECREASED [None]
  - CARDIOVASCULAR DISORDER [None]
  - DRUG INTERACTION [None]
  - DUODENITIS HAEMORRHAGIC [None]
  - GASTRITIS HAEMORRHAGIC [None]
  - HAEMATOCRIT DECREASED [None]
  - HAEMOGLOBIN DECREASED [None]
  - HEART RATE INCREASED [None]
  - INTERNATIONAL NORMALISED RATIO INCREASED [None]
  - MELAENA [None]
  - PROTHROMBIN TIME PROLONGED [None]
  - THROMBIN TIME SHORTENED [None]
  - WHITE BLOOD CELL COUNT INCREASED [None]
